FAERS Safety Report 12093257 (Version 1)
Quarter: 2016Q1

REPORT INFORMATION
  Report Type: Other
  Country: TR (occurrence: TR)
  Receive Date: 20160219
  Receipt Date: 20160219
  Transmission Date: 20160526
  Serious: Yes (Hospitalization)
  Sender: FDA-Public Use
  Company Number: TR-ENDO PHARMACEUTICALS INC-2016-001135

PATIENT
  Age: 55 Year
  Sex: Male

DRUGS (1)
  1. METFORMIN [Suspect]
     Active Substance: METFORMIN HYDROCHLORIDE
     Indication: PRODUCT USED FOR UNKNOWN INDICATION
     Dosage: 50G
     Route: 048
     Dates: start: 201504

REACTIONS (5)
  - Lactic acidosis [Recovered/Resolved]
  - Suicide attempt [Recovered/Resolved]
  - Myocardial ischaemia [Not Recovered/Not Resolved]
  - Intentional overdose [Recovered/Resolved]
  - Acute kidney injury [Recovered/Resolved]

NARRATIVE: CASE EVENT DATE: 2015
